FAERS Safety Report 12722274 (Version 1)
Quarter: 2016Q3

REPORT INFORMATION
  Report Type: Report from Study
  Country: US (occurrence: US)
  Receive Date: 20160907
  Receipt Date: 20160907
  Transmission Date: 20161109
  Serious: Yes (Other)
  Sender: FDA-Public Use
  Company Number: US-ABBVIE-16K-163-1714585-00

PATIENT
  Sex: Female

DRUGS (4)
  1. KLONOPIN [Concomitant]
     Active Substance: CLONAZEPAM
     Indication: PRODUCT USED FOR UNKNOWN INDICATION
  2. HUMIRA [Suspect]
     Active Substance: ADALIMUMAB
     Route: 058
  3. HUMIRA [Suspect]
     Active Substance: ADALIMUMAB
     Indication: RHEUMATOID ARTHRITIS
     Route: 058
     Dates: start: 2014
  4. HUMIRA [Suspect]
     Active Substance: ADALIMUMAB
     Route: 058

REACTIONS (7)
  - Colitis ulcerative [Not Recovered/Not Resolved]
  - Arthropod bite [Recovered/Resolved]
  - Helicobacter infection [Recovered/Resolved]
  - Gallbladder polyp [Recovered/Resolved]
  - Postoperative wound infection [Recovered/Resolved]
  - Upper respiratory tract infection [Recovered/Resolved]
  - Viral sepsis [Recovered/Resolved]

NARRATIVE: CASE EVENT DATE: 2015
